FAERS Safety Report 12900812 (Version 4)
Quarter: 2016Q4

REPORT INFORMATION
  Report Type: Spontaneous
  Country: JP (occurrence: JP)
  Receive Date: 20161101
  Receipt Date: 20161111
  Transmission Date: 20170207
  Serious: Yes (Other)
  Sender: FDA-Public Use
  Company Number: PHJP2016JP031018

PATIENT
  Age: 71 Year
  Sex: Male

DRUGS (4)
  1. TACROLIMUS. [Concomitant]
     Active Substance: TACROLIMUS
     Indication: ULCERATIVE KERATITIS
     Dosage: 4 GTT, QD
     Route: 047
  2. BETAMETHASONE. [Concomitant]
     Active Substance: BETAMETHASONE
     Indication: ULCERATIVE KERATITIS
     Dosage: 4 GTT, QD
     Route: 047
  3. CICLOSPORIN [Suspect]
     Active Substance: CYCLOSPORINE
     Indication: ULCERATIVE KERATITIS
     Dosage: 75-200 MG, UNK
     Route: 048
  4. BETAMETHASONE. [Concomitant]
     Active Substance: BETAMETHASONE
     Dosage: 6 GTT, QD
     Route: 047

REACTIONS (4)
  - Product use issue [Unknown]
  - Keratomalacia [Unknown]
  - Renal disorder [Unknown]
  - Ulcerative keratitis [Unknown]
